FAERS Safety Report 4789938-3 (Version None)
Quarter: 2005Q4

REPORT INFORMATION
  Report Type: 
  Country: None (occurrence: None)
  Receive Date: 20051006
  Receipt Date: 20050929
  Transmission Date: 20060501
  Serious: Yes (Other)
  Sender: FDA-Public Use
  Company Number: US-MERCK-0510USA00310

PATIENT
  Sex: Male
  Weight: 75 kg

DRUGS (4)
  1. VIOXX [Suspect]
     Indication: ARTHRITIS
     Route: 048
     Dates: start: 20010101, end: 20031001
  2. ALTACE [Concomitant]
     Route: 065
  3. CIMETIDINE [Concomitant]
     Route: 065
  4. ATENOLOL [Concomitant]
     Route: 065

REACTIONS (3)
  - MENTAL STATUS CHANGES [None]
  - MYOCARDIAL INFARCTION [None]
  - PAIN [None]
